FAERS Safety Report 14048306 (Version 2)
Quarter: 2017Q4

REPORT INFORMATION
  Report Type: Report from Study
  Country: PK (occurrence: PK)
  Receive Date: 20171005
  Receipt Date: 20171009
  Transmission Date: 20180321
  Serious: Yes (Death, Other)
  Sender: FDA-Public Use
  Company Number: PHHY2017PK145796

PATIENT
  Age: 55 Year
  Sex: Female

DRUGS (1)
  1. TYKERB [Suspect]
     Active Substance: LAPATINIB DITOSYLATE
     Indication: BREAST CANCER
     Dosage: 250 MG,(3XOD) TID
     Route: 048
     Dates: start: 20160413, end: 20170909

REACTIONS (5)
  - Death [Fatal]
  - Cough [Unknown]
  - Metastases to bone [Unknown]
  - Metastases to lung [Unknown]
  - Bone pain [Unknown]

NARRATIVE: CASE EVENT DATE: 20170415
